FAERS Safety Report 21754626 (Version 1)
Quarter: 2022Q4

REPORT INFORMATION
  Report Type: Spontaneous
  Country: JP (occurrence: JP)
  Receive Date: 20221220
  Receipt Date: 20221220
  Transmission Date: 20230113
  Serious: Yes (Other)
  Sender: FDA-Public Use
  Company Number: JP-OTSUKA-2022_054920

PATIENT

DRUGS (13)
  1. ABILIFY [Suspect]
     Active Substance: ARIPIPRAZOLE
     Indication: Product used for unknown indication
     Dosage: 12MG, UNK
     Route: 048
     Dates: start: 201005
  2. ABILIFY [Suspect]
     Active Substance: ARIPIPRAZOLE
     Dosage: 1MG, UNK
     Route: 048
     Dates: start: 202006
  3. REXULTI [Suspect]
     Active Substance: BREXPIPRAZOLE
     Indication: Product used for unknown indication
     Dosage: 2MG, UNK
     Route: 048
     Dates: start: 202209
  4. REXULTI [Suspect]
     Active Substance: BREXPIPRAZOLE
     Dosage: 2MG, UNK
     Route: 048
     Dates: start: 202210
  5. REXULTI [Suspect]
     Active Substance: BREXPIPRAZOLE
     Dosage: 1MG, UNK
     Route: 048
     Dates: start: 202212
  6. HALOPERIDOL [Suspect]
     Active Substance: HALOPERIDOL
     Indication: Product used for unknown indication
     Dosage: 3MG, UNK
     Route: 048
     Dates: start: 202208
  7. DULOXETINE HYDROCHLORIDE [Suspect]
     Active Substance: DULOXETINE HYDROCHLORIDE
     Indication: Product used for unknown indication
     Dosage: 20MG, UNK
     Route: 048
     Dates: start: 202210
  8. AKINETON [Concomitant]
     Active Substance: BIPERIDEN HYDROCHLORIDE
     Indication: Product used for unknown indication
     Dosage: 1MG, UNK
     Route: 048
     Dates: start: 201005
  9. ZOLPIDEM TARTRATE [Concomitant]
     Active Substance: ZOLPIDEM TARTRATE
     Indication: Product used for unknown indication
     Dosage: 5MG, UNK
     Route: 048
     Dates: start: 202006
  10. ZOLPIDEM TARTRATE [Concomitant]
     Active Substance: ZOLPIDEM TARTRATE
     Dosage: 5MG, UNK
     Route: 048
     Dates: start: 202209
  11. ZOLPIDEM TARTRATE [Concomitant]
     Active Substance: ZOLPIDEM TARTRATE
     Dosage: 5MG, UNK
     Route: 048
     Dates: start: 202210
  12. ZOLPIDEM TARTRATE [Concomitant]
     Active Substance: ZOLPIDEM TARTRATE
     Dosage: 5MG, UNK
     Route: 048
     Dates: start: 202212
  13. TRINTELLIX [Concomitant]
     Active Substance: VORTIOXETINE HYDROBROMIDE
     Indication: Product used for unknown indication
     Dosage: 10MG, UNK
     Route: 048
     Dates: start: 202212

REACTIONS (7)
  - Schizophrenia [Unknown]
  - Hyperprolactinaemia [Unknown]
  - Sexual dysfunction [Unknown]
  - Depression [Unknown]
  - Akathisia [Unknown]
  - Insomnia [Unknown]
  - Pyrexia [Unknown]

NARRATIVE: CASE EVENT DATE: 20100501
